FAERS Safety Report 5331864-5 (Version None)
Quarter: 2007Q2

REPORT INFORMATION
  Report Type: 
  Country: None (occurrence: None)
  Receive Date: 20070523
  Receipt Date: 20070515
  Transmission Date: 20071010
  Serious: Yes (Other)
  Sender: FDA-Public Use
  Company Number: US-BAYER-200616339BWH

PATIENT
  Age: 85 Year
  Sex: Female

DRUGS (8)
  1. NEXAVAR [Suspect]
     Indication: RENAL CELL CARCINOMA STAGE IV
     Dosage: TOTAL DAILY DOSE: 800 MG  UNIT DOSE: 200 MG
     Route: 048
     Dates: start: 20061023, end: 20061101
  2. METOPROLOL SUCCINATE [Concomitant]
     Dates: start: 20061101
  3. SPIRONLACTONE [Concomitant]
     Dates: start: 20061101
  4. LEVOXYL [Concomitant]
     Dates: start: 20061101
  5. LASIX [Concomitant]
     Dates: start: 20061101
  6. NORVASC [Concomitant]
     Dates: start: 20061101
  7. COZAAR [Concomitant]
     Dates: start: 20061101
  8. COUMADIN [Concomitant]
     Dates: start: 20061101

REACTIONS (4)
  - CHEST DISCOMFORT [None]
  - CHEST PAIN [None]
  - HEART RATE INCREASED [None]
  - HEART RATE IRREGULAR [None]
